FAERS Safety Report 9085300 (Version 1)
Quarter: 2013Q1

REPORT INFORMATION
  Report Type: Spontaneous
  Country: US (occurrence: US)
  Receive Date: 20130131
  Receipt Date: 20130131
  Transmission Date: 20140127
  Serious: No
  Sender: FDA-Public Use
  Company Number: US-ABBOTT-12P-163-0995743-00

PATIENT
  Sex: Female
  Weight: 63.56 kg

DRUGS (5)
  1. HUMIRA [Suspect]
     Indication: RHEUMATOID ARTHRITIS
     Route: 058
     Dates: start: 2009, end: 201209
  2. HUMIRA [Suspect]
     Route: 058
     Dates: start: 201209
  3. METHOTREXATE [Concomitant]
     Indication: RHEUMATOID ARTHRITIS
     Dosage: SIX 2.5MG TABLETS WEEKLY
     Dates: end: 201209
  4. METHOTREXATE [Concomitant]
     Dosage: EIGHT 2.5MG TABLETS WEEKLY
     Dates: start: 201209
  5. FOLIC ACID [Concomitant]
     Indication: VITAMIN SUPPLEMENTATION

REACTIONS (2)
  - Synovitis [Recovering/Resolving]
  - Arthralgia [Recovering/Resolving]
